FAERS Safety Report 6643412-8 (Version None)
Quarter: 2010Q1

REPORT INFORMATION
  Report Type: 
  Country: None (occurrence: None)
  Receive Date: 20100319
  Receipt Date: 20100308
  Transmission Date: 20100710
  Serious: Yes (Other)
  Sender: FDA-Public Use
  Company Number: IN-WATSON-2010-02678

PATIENT
  Age: 7 Year
  Sex: Male

DRUGS (4)
  1. ISONIAZID [Suspect]
     Indication: TUBERCULOSIS
     Dosage: UNK
  2. RIFAMPIN [Suspect]
     Indication: TUBERCULOSIS
  3. PYRAZINAMIDE [Suspect]
     Indication: TUBERCULOSIS
  4. ETHAMBUTOL HYDROCHLORIDE [Suspect]
     Indication: TUBERCULOSIS

REACTIONS (2)
  - PARADOXICAL DRUG REACTION [None]
  - TUBERCULOMA OF CENTRAL NERVOUS SYSTEM [None]
